FAERS Safety Report 16466358 (Version 1)
Quarter: 2019Q2

REPORT INFORMATION
  Report Type: Spontaneous
  Country: GB (occurrence: GB)
  Receive Date: 20190622
  Receipt Date: 20190622
  Transmission Date: 20190711
  Serious: Yes (Hospitalization, Other)
  Sender: FDA-Public Use
  Company Number: GB-APOTEX-2019AP016891

PATIENT
  Sex: Female

DRUGS (1)
  1. MYCOPHENOLATE [Suspect]
     Active Substance: MYCOPHENOLIC ACID
     Indication: PRODUCT USED FOR UNKNOWN INDICATION
     Dosage: UNK
     Route: 065

REACTIONS (3)
  - Lymphopenia [Recovered/Resolved]
  - Respiratory failure [Unknown]
  - Respiratory tract infection [Unknown]
